FAERS Safety Report 21720315 (Version 1)
Quarter: 2022Q4

REPORT INFORMATION
  Report Type: Spontaneous
  Country: US (occurrence: US)
  Receive Date: 20221213
  Receipt Date: 20221213
  Transmission Date: 20230113
  Serious: No
  Sender: FDA-Public Use
  Company Number: US-GSKCCFUS-Case-01573288_AE-88912

PATIENT
  Age: 38 Year
  Sex: Female

DRUGS (2)
  1. BENLYSTA [Suspect]
     Active Substance: BELIMUMAB
     Indication: Product used for unknown indication
     Dosage: 400 MG (TOTAL DOSE: 760 MG)
     Route: 042
     Dates: start: 20221205, end: 20221205
  2. BENLYSTA [Suspect]
     Active Substance: BELIMUMAB
     Dosage: 360 MG (THREE VIALS OF 120 MG; TOTAL DOSE: 760 MG)
     Route: 042
     Dates: start: 20221205, end: 20221205

REACTIONS (1)
  - Product preparation issue [Unknown]

NARRATIVE: CASE EVENT DATE: 20221205
